FAERS Safety Report 5985844-7 (Version None)
Quarter: 2008Q4

REPORT INFORMATION
  Report Type: 
  Country: None (occurrence: None)
  Receive Date: 20081209
  Receipt Date: 20080402
  Transmission Date: 20090506
  Serious: No
  Sender: FDA-Public Use
  Company Number: US-AMGEN-KDL268425

PATIENT
  Sex: Female

DRUGS (9)
  1. ENBREL [Suspect]
     Indication: PSORIASIS
     Route: 058
     Dates: start: 20080113
  2. TRIAMCINOLONE ACETONIDE [Concomitant]
  3. SYNTHROID [Concomitant]
     Route: 048
     Dates: start: 20080222
  4. PREMARIN [Concomitant]
     Route: 067
     Dates: start: 20080222
  5. CALCIPOTRIENE [Concomitant]
     Route: 061
     Dates: start: 20070126
  6. LISINOPRIL [Concomitant]
     Route: 048
     Dates: start: 20071126, end: 20080314
  7. CLARINEX [Concomitant]
     Route: 048
     Dates: start: 20050322, end: 20060322
  8. HYDROCHLOROTHIAZIDE [Concomitant]
     Route: 048
     Dates: start: 20080222, end: 20080314
  9. LIDOCAINE [Concomitant]
     Route: 061
     Dates: start: 20071126, end: 20080326

REACTIONS (5)
  - DRUG HYPERSENSITIVITY [None]
  - INFLUENZA LIKE ILLNESS [None]
  - MALAISE [None]
  - NAUSEA [None]
  - VOMITING [None]
